FAERS Safety Report 8955974 (Version 1)
Quarter: 2012Q4

REPORT INFORMATION
  Report Type: 
  Country: US (occurrence: US)
  Receive Date: 20121210
  Receipt Date: 20121210
  Transmission Date: 20130627
  Serious: Yes (Other)
  Sender: FDA-Public Use
  Company Number: US-ELI_LILLY_AND_COMPANY-US201211008970

PATIENT
  Sex: Female

DRUGS (1)
  1. STRATTERA [Suspect]
     Dosage: UNK
     Dates: start: 2007, end: 201210

REACTIONS (3)
  - Drug-induced liver injury [Unknown]
  - Diabetes mellitus [Unknown]
  - Weight decreased [Unknown]
